FAERS Safety Report 19363144 (Version 2)
Quarter: 2021Q3

REPORT INFORMATION
  Report Type: Spontaneous
  Country: JP (occurrence: JP)
  Receive Date: 20210603
  Receipt Date: 20210705
  Transmission Date: 20211014
  Serious: Yes (Hospitalization)
  Sender: FDA-Public Use
  Company Number: JP-ACCORD-227206

PATIENT
  Age: 67 Year
  Sex: Female

DRUGS (15)
  1. FAMOTIDINE. [Concomitant]
     Active Substance: FAMOTIDINE
  2. LEVETIRACETAM. [Concomitant]
     Active Substance: LEVETIRACETAM
     Indication: SEIZURE
  3. APREPITANT. [Concomitant]
     Active Substance: APREPITANT
     Indication: NAUSEA
  4. LEVOFLOXACIN. [Interacting]
     Active Substance: LEVOFLOXACIN
     Indication: URINARY TRACT INFECTION
     Dosage: 500 MG ONCE DAILY FOR 2 DAYS FOLLOWED BY ORAL LVFX FOR 4 DAYS
     Route: 042
  5. BETAMETHASONE. [Concomitant]
     Active Substance: BETAMETHASONE
     Indication: RASH
     Route: 048
  6. METHOTREXATE. [Suspect]
     Active Substance: METHOTREXATE
     Indication: CENTRAL NERVOUS SYSTEM LYMPHOMA
     Dosage: 3.5 G/M2 OVER 2 H
  7. GRANISETRON [Concomitant]
     Active Substance: GRANISETRON
     Indication: NAUSEA
  8. LACOSAMIDE. [Concomitant]
     Active Substance: LACOSAMIDE
  9. VINCRISTINE [Concomitant]
     Active Substance: VINCRISTINE
     Dosage: 1.4 MG/M2, MAXIMUM DOSE OVER 10 MIN
     Route: 042
  10. SODIUM BICARBONATE. [Concomitant]
     Active Substance: SODIUM BICARBONATE
     Indication: SUPPORTIVE CARE
     Dosage: 100 MEQ/DAY OF SODIUM BICARBONATE
  11. QUETIAPINE. [Concomitant]
     Active Substance: QUETIAPINE
  12. PROCARBAZINE [Concomitant]
     Active Substance: PROCARBAZINE
  13. LEVOTHYROXINE. [Concomitant]
     Active Substance: LEVOTHYROXINE
  14. PERAMPANEL [Concomitant]
     Active Substance: PERAMPANEL
  15. FOLINIC ACID [Concomitant]
     Active Substance: LEUCOVORIN
     Dosage: EVERY 6 H
     Route: 042

REACTIONS (2)
  - Drug level increased [Recovered/Resolved]
  - Drug interaction [Unknown]
